FAERS Safety Report 7231707-9 (Version None)
Quarter: 2011Q1

REPORT INFORMATION
  Report Type: 
  Country: None (occurrence: None)
  Receive Date: 20110118
  Receipt Date: 20100921
  Transmission Date: 20110831
  Serious: Yes (Other)
  Sender: FDA-Public Use
  Company Number: PHHY2010US18557

PATIENT
  Sex: Female
  Weight: 188 kg

DRUGS (6)
  1. COMPAZINE [Concomitant]
  2. LOTREL [Concomitant]
     Indication: HYPERTENSION
  3. GLEEVEC [Suspect]
     Indication: GASTROINTESTINAL STROMAL TUMOUR
     Dosage: 400 MG, QD
     Route: 048
  4. CALCIUM [Concomitant]
     Dosage: UNK
  5. GLEEVEC [Suspect]
     Dosage: UNK
     Route: 048
  6. ZANTAC [Concomitant]
     Dosage: UNK

REACTIONS (7)
  - VOMITING [None]
  - FUNGAL OESOPHAGITIS [None]
  - RASH [None]
  - PERIORBITAL OEDEMA [None]
  - NAUSEA [None]
  - STOMATITIS [None]
  - INCORRECT DOSE ADMINISTERED [None]
